FAERS Safety Report 12748699 (Version 1)
Quarter: 2016Q3

REPORT INFORMATION
  Report Type: Spontaneous
  Country: US (occurrence: US)
  Receive Date: 20160915
  Receipt Date: 20160915
  Transmission Date: 20161109
  Serious: Yes (Hospitalization)
  Sender: FDA-Public Use
  Company Number: US-JNJFOC-20160912755

PATIENT
  Sex: Female

DRUGS (2)
  1. YAZ [Suspect]
     Active Substance: DROSPIRENONE\ETHINYL ESTRADIOL
     Indication: PRODUCT USED FOR UNKNOWN INDICATION
     Route: 048
  2. XARELTO [Suspect]
     Active Substance: RIVAROXABAN
     Indication: PULMONARY EMBOLISM
     Route: 048

REACTIONS (8)
  - Chest pain [Unknown]
  - Menorrhagia [Unknown]
  - Dizziness [Unknown]
  - Thrombosis [Unknown]
  - Pulmonary embolism [Unknown]
  - Dysmenorrhoea [Unknown]
  - Contusion [Unknown]
  - Dyspnoea [Unknown]
